FAERS Safety Report 7469810 (Version 5)
Quarter: 2013Q1

REPORT INFORMATION
  Report Type: Spontaneous
  Country: US (occurrence: US)
  Receive Date: 20100713
  Receipt Date: 20130201
  Transmission Date: 20140127
  Serious: Yes (Hospitalization)
  Sender: FDA-Public Use
  Company Number: US-BAYER-201027410NA

PATIENT
  Age: 42 Year
  Sex: Female
  Weight: 98 kg

DRUGS (10)
  1. YAZ [Suspect]
     Indication: ORAL CONTRACEPTION
     Route: 048
     Dates: start: 200711, end: 200806
  2. YASMIN [Suspect]
     Route: 048
  3. LISINOPRIL [Concomitant]
     Indication: HYPERTENSION
     Dosage: 20 MG, UNK
     Route: 048
  4. CALCIUM CARBONATE [Concomitant]
     Indication: PERIPHERAL ARTERY THROMBOSIS
  5. ESOMEPRAZOLE [Concomitant]
  6. METOPROLOL [Concomitant]
  7. POTASSIUM CHLORIDE [Concomitant]
  8. HYDROCODONE [Concomitant]
  9. MEPERIDINE [Concomitant]
  10. ONDANSETRON [Concomitant]

REACTIONS (2)
  - Thrombosis [None]
  - Peripheral artery thrombosis [None]
